FAERS Safety Report 15373594 (Version 1)
Quarter: 2018Q3

REPORT INFORMATION
  Report Type: Spontaneous
  Country: US (occurrence: US)
  Receive Date: 20180912
  Receipt Date: 20180912
  Transmission Date: 20181010
  Serious: No
  Sender: FDA-Public Use
  Company Number: US-PFIZER INC-2018362336

PATIENT
  Age: 68 Year
  Sex: Male
  Weight: 111.13 kg

DRUGS (2)
  1. GABAPENTIN. [Suspect]
     Active Substance: GABAPENTIN
     Dosage: 4 DF, TWICE DAILY
     Route: 048
  2. GABAPENTIN. [Suspect]
     Active Substance: GABAPENTIN
     Indication: NEUROPATHY PERIPHERAL
     Dosage: 1800 MG, TWICE DAILY
     Route: 048

REACTIONS (1)
  - Drug ineffective for unapproved indication [Not Recovered/Not Resolved]
